FAERS Safety Report 8988216 (Version 1)
Quarter: 2012Q4

REPORT INFORMATION
  Report Type: 
  Country: GB (occurrence: GB)
  Receive Date: 20121227
  Receipt Date: 20121227
  Transmission Date: 20130627
  Serious: Yes (Other)
  Sender: FDA-Public Use
  Company Number: GB-WATSON-2012-22885

PATIENT

DRUGS (1)
  1. LISINOPRIL (UNKNOWN) [Suspect]
     Indication: BLOOD PRESSURE
     Dosage: 5 mg, daily
     Route: 065

REACTIONS (4)
  - Anaemia [Unknown]
  - Biopsy bone marrow abnormal [Unknown]
  - White blood cell count decreased [Unknown]
  - Platelet count decreased [Unknown]
